FAERS Safety Report 20377901 (Version 1)
Quarter: 2022Q1

REPORT INFORMATION
  Report Type: Spontaneous
  Country: JP (occurrence: JP)
  Receive Date: 20220126
  Receipt Date: 20220126
  Transmission Date: 20220423
  Serious: Yes (Other)
  Sender: FDA-Public Use
  Company Number: JP-NOVARTISPH-NVSJ2022JP001871

PATIENT
  Age: 63 Year
  Sex: Male

DRUGS (4)
  1. TAFINLAR [Suspect]
     Active Substance: DABRAFENIB MESYLATE
     Indication: Metastatic malignant melanoma
     Dosage: 300 MG
     Route: 048
  2. TAFINLAR [Suspect]
     Active Substance: DABRAFENIB MESYLATE
     Dosage: 300 MG
     Route: 048
  3. MEKINIST [Suspect]
     Active Substance: TRAMETINIB DIMETHYL SULFOXIDE
     Indication: Metastatic malignant melanoma
     Dosage: 2 MG
     Route: 048
  4. MEKINIST [Suspect]
     Active Substance: TRAMETINIB DIMETHYL SULFOXIDE
     Dosage: 2 MG
     Route: 048

REACTIONS (4)
  - Rhabdomyolysis [Unknown]
  - Melanoma recurrent [Unknown]
  - Metastases to bone [Unknown]
  - Pyrexia [Recovered/Resolved]
